FAERS Safety Report 7202172-2 (Version None)
Quarter: 2010Q4

REPORT INFORMATION
  Report Type: 
  Country: None (occurrence: None)
  Receive Date: 20101229
  Receipt Date: 20101216
  Transmission Date: 20110411
  Serious: Yes (Other)
  Sender: FDA-Public Use
  Company Number: PHHY2010DK85850

PATIENT

DRUGS (1)
  1. ZOMETA [Suspect]
     Indication: BONE DENSITY DECREASED

REACTIONS (2)
  - OSTEONECROSIS OF JAW [None]
  - PAIN [None]
